FAERS Safety Report 4400955-5 (Version None)
Quarter: 2004Q3

REPORT INFORMATION
  Report Type: 
  Country: None (occurrence: None)
  Receive Date: 20040907
  Receipt Date: 20030825
  Transmission Date: 20050211
  Serious: No
  Sender: FDA-Public Use
  Company Number: US-BRISTOL-MYERS SQUIBB COMPANY-12365623

PATIENT
  Age: 13 Year
  Sex: Male
  Weight: 54 kg

DRUGS (4)
  1. COUMADIN [Suspect]
     Indication: AORTIC VALVE REPLACEMENT
     Dosage: DOSAGE: 2MG DAILY, INCREASED TO 3MG DAILY, THEN SWITCHED TO 2MG AND 3MG ALTERNATING DAILY
     Route: 048
     Dates: start: 20020601
  2. COUMADIN [Suspect]
     Indication: MITRAL VALVE REPLACEMENT
     Dosage: DOSAGE: 2MG DAILY, INCREASED TO 3MG DAILY, THEN SWITCHED TO 2MG AND 3MG ALTERNATING DAILY
     Route: 048
     Dates: start: 20020601
  3. ATENOLOL [Concomitant]
  4. MULTI-VITAMIN [Concomitant]

REACTIONS (1)
  - PROTHROMBIN TIME PROLONGED [None]
